FAERS Safety Report 18496575 (Version 1)
Quarter: 2020Q4

REPORT INFORMATION
  Report Type: Spontaneous
  Country: US (occurrence: US)
  Receive Date: 20201112
  Receipt Date: 20201112
  Transmission Date: 20210114
  Serious: Yes (Hospitalization)
  Sender: FDA-Public Use
  Company Number: None

PATIENT
  Age: 87 Year
  Sex: Male
  Weight: 56.25 kg

DRUGS (3)
  1. DONEPEZIL. [Suspect]
     Active Substance: DONEPEZIL
     Indication: MEMORY IMPAIRMENT
     Dosage: ?          QUANTITY:1 TABLET(S);?
     Route: 048
  2. MULTI VITAMIN [Concomitant]
     Active Substance: VITAMINS
  3. ATORVASTATIN [Concomitant]
     Active Substance: ATORVASTATIN

REACTIONS (10)
  - Musculoskeletal stiffness [None]
  - Therapy interrupted [None]
  - Nausea [None]
  - Product label issue [None]
  - Abdominal pain [None]
  - Dizziness [None]
  - Diverticulitis [None]
  - Depression [None]
  - Pain in extremity [None]
  - Hernia [None]

NARRATIVE: CASE EVENT DATE: 20200123
